FAERS Safety Report 20881411 (Version 1)
Quarter: 2022Q2

REPORT INFORMATION
  Report Type: Spontaneous
  Country: US (occurrence: US)
  Receive Date: 20220526
  Receipt Date: 20220526
  Transmission Date: 20220721
  Serious: No
  Sender: FDA-Public Use
  Company Number: US-RADIUS HEALTH INC.-2022US001327

PATIENT
  Sex: Female

DRUGS (2)
  1. TYMLOS [Suspect]
     Active Substance: ABALOPARATIDE
     Indication: Senile osteoporosis
     Dosage: 80 MCG, QD
     Route: 058
     Dates: start: 20211019
  2. TYMLOS [Suspect]
     Active Substance: ABALOPARATIDE
     Indication: Intervertebral disc disorder
     Dosage: 80 MCG, QD
     Route: 058
     Dates: start: 20220331

REACTIONS (5)
  - Dysuria [Unknown]
  - Nocturia [Unknown]
  - Bone pain [Unknown]
  - Abdominal pain upper [Unknown]
  - Product dose omission issue [Unknown]
